FAERS Safety Report 7304404-9 (Version None)
Quarter: 2011Q1

REPORT INFORMATION
  Report Type: 
  Country: None (occurrence: None)
  Receive Date: 20110221
  Receipt Date: 20110209
  Transmission Date: 20110831
  Serious: Yes (Other)
  Sender: FDA-Public Use
  Company Number: US-ELI_LILLY_AND_COMPANY-US201102002972

PATIENT
  Sex: Female

DRUGS (1)
  1. FORTEO [Suspect]
     Indication: OSTEOPOROSIS
     Dosage: UNK, UNKNOWN
     Route: 065

REACTIONS (5)
  - PAIN IN EXTREMITY [None]
  - MUSCLE SPASMS [None]
  - ARTHRITIS [None]
  - ANKLE FRACTURE [None]
  - FEMUR FRACTURE [None]
